FAERS Safety Report 19035934 (Version 1)
Quarter: 2021Q1

REPORT INFORMATION
  Report Type: Spontaneous
  Country: ES (occurrence: ES)
  Receive Date: 20210321
  Receipt Date: 20210321
  Transmission Date: 20210420
  Serious: Yes (Other)
  Sender: FDA-Public Use
  Company Number: ES-TEVA-2021-ES-1891516

PATIENT
  Age: 91 Year
  Sex: Male

DRUGS (5)
  1. TRAMADOL (2389A) [Interacting]
     Active Substance: TRAMADOL
     Dosage: 100MG
     Route: 048
     Dates: start: 20210210, end: 20210210
  2. TRYPTIZOL [Interacting]
     Active Substance: AMITRIPTYLINE HYDROCHLORIDE
     Dosage: 25MG
     Route: 048
     Dates: start: 20210210, end: 20210210
  3. TRAZODONA (3160A) [Interacting]
     Active Substance: TRAZODONE HYDROCHLORIDE
     Dosage: 100MG
     Route: 048
     Dates: start: 20210210, end: 20210210
  4. MIRTAZAPINA (2704A) [Suspect]
     Active Substance: MIRTAZAPINE
     Dosage: 30MG
     Route: 048
     Dates: start: 20210210, end: 20210210
  5. LORAZEPAM (1864A) [Interacting]
     Active Substance: LORAZEPAM
     Dosage: 1MG
     Route: 048
     Dates: start: 20210210, end: 20210210

REACTIONS (5)
  - Depressed level of consciousness [Recovered/Resolved]
  - Somnolence [Recovered/Resolved]
  - Drug interaction [Unknown]
  - Disorientation [Recovered/Resolved]
  - Wrong patient received product [Recovered/Resolved]

NARRATIVE: CASE EVENT DATE: 20210210
